FAERS Safety Report 15463316 (Version 3)
Quarter: 2022Q4

REPORT INFORMATION
  Report Type: Report from Study
  Country: ES (occurrence: ES)
  Receive Date: 20181004
  Receipt Date: 20221115
  Transmission Date: 20230113
  Serious: Yes (Hospitalization)
  Sender: FDA-Public Use
  Company Number: ES-KYOWAKIRIN-2018BKK001419

PATIENT
  Age: 55 Year
  Sex: Female

DRUGS (36)
  1. MORPHINE SULFATE [Suspect]
     Active Substance: MORPHINE SULFATE
     Indication: Breakthrough pain
     Dosage: 200 MG IN THE MORNING, 160 MG IN THE EVENING
     Route: 048
     Dates: start: 201711, end: 201711
  2. MORPHINE SULFATE [Suspect]
     Active Substance: MORPHINE SULFATE
     Indication: Pain
     Dosage: 300 MG, Q12H
     Route: 048
     Dates: start: 201711, end: 2017
  3. MORPHINE SULFATE [Suspect]
     Active Substance: MORPHINE SULFATE
     Dosage: 200 MG, Q12H
     Route: 048
     Dates: start: 201711, end: 201711
  4. MORPHINE SULFATE [Suspect]
     Active Substance: MORPHINE SULFATE
     Dosage: CONTINUOUS INFUSION PUMP
     Route: 058
  5. MORPHINE SULFATE [Suspect]
     Active Substance: MORPHINE SULFATE
     Dosage: 160 MG, Q12H
     Route: 048
     Dates: start: 201711, end: 201711
  6. MORPHINE SULFATE [Suspect]
     Active Substance: MORPHINE SULFATE
     Dosage: 30 MG, IF FENTANYL WAS INSUFFICIENT
     Route: 058
     Dates: start: 201711, end: 2017
  7. MORPHINE SULFATE [Suspect]
     Active Substance: MORPHINE SULFATE
     Dosage: 20 MG, EVERY 4 HOURS IF SHE PRESENTED BREAKTHROUGH PAIN
     Route: 048
     Dates: start: 2017, end: 2017
  8. MORPHINE SULFATE [Suspect]
     Active Substance: MORPHINE SULFATE
     Dosage: 260 MG, Q12H
     Route: 048
     Dates: start: 201711, end: 201711
  9. MORPHINE SULFATE [Suspect]
     Active Substance: MORPHINE SULFATE
     Dosage: MORE THAN 5 DOSES OF 20 MG PER DAY
     Route: 048
     Dates: start: 201711
  10. MORPHINE SULFATE [Suspect]
     Active Substance: MORPHINE SULFATE
     Dosage: 5 MG, UNK
     Route: 048
     Dates: start: 2017, end: 201711
  11. FENTANYL [Suspect]
     Active Substance: FENTANYL
     Indication: Analgesic therapy
     Dosage: 150 UG, EVERY 72 H
     Route: 062
  12. FENTANYL [Suspect]
     Active Substance: FENTANYL
     Dosage: 25 UG/H
     Route: 065
  13. FENTANYL [Suspect]
     Active Substance: FENTANYL
     Dosage: 25 UG/H
     Route: 065
     Dates: start: 201702, end: 2017
  14. FENTANYL [Suspect]
     Active Substance: FENTANYL
     Dosage: 150 UG, EVERY 72 H
     Route: 065
     Dates: start: 201711
  15. FENTANYL [Suspect]
     Active Substance: FENTANYL
     Indication: Breakthrough pain
     Dosage: 400 UG, 2 IN THE MORNING AND 1 OR 2 IN THE EVENING/NIGHT
     Route: 065
  16. FENTANYL [Suspect]
     Active Substance: FENTANYL
     Dosage: 400 UG, PER DOSE
     Route: 045
     Dates: start: 201711, end: 2017
  17. FENTANYL [Suspect]
     Active Substance: FENTANYL
     Indication: Breakthrough pain
     Dosage: UP TO 600 UG, RESCUES
     Route: 060
  18. FENTANYL [Suspect]
     Active Substance: FENTANYL
     Dosage: 200 UG, RESCUE
     Route: 060
  19. FENTANYL [Suspect]
     Active Substance: FENTANYL
     Dosage: 200 UG, RESCUE
     Route: 060
     Dates: start: 201702, end: 2017
  20. FENTANYL [Suspect]
     Active Substance: FENTANYL
     Dosage: UP TO 600 UG, RESCUES
     Route: 060
     Dates: start: 201711, end: 2017
  21. CARBOPLATIN [Suspect]
     Active Substance: CARBOPLATIN
     Indication: Non-small cell lung cancer metastatic
     Dosage: UNKNOWN
     Route: 065
     Dates: start: 201711
  22. VINORELBINE [Suspect]
     Active Substance: VINORELBINE TARTRATE
     Indication: Non-small cell lung cancer metastatic
     Dosage: UNKNOWN
     Route: 065
     Dates: start: 201711
  23. ATEZOLIZUMAB [Suspect]
     Active Substance: ATEZOLIZUMAB
     Indication: Non-small cell lung cancer metastatic
     Dosage: UNKNOWN
     Route: 065
     Dates: start: 2017
  24. CISPLATIN\PEMETREXED [Suspect]
     Active Substance: CISPLATIN\PEMETREXED
     Indication: Non-small cell lung cancer metastatic
     Dosage: UNKNOWN
     Route: 065
     Dates: start: 201702, end: 2017
  25. PEMBROLIZUMAB [Suspect]
     Active Substance: PEMBROLIZUMAB
     Indication: Non-small cell lung cancer metastatic
     Dosage: UNKNOWN
     Route: 065
     Dates: start: 2017
  26. IBUPROFEN [Concomitant]
     Active Substance: IBUPROFEN
     Indication: Pain
     Dosage: 600 MG, Q8H
     Dates: start: 201711
  27. PREGABALIN [Concomitant]
     Active Substance: PREGABALIN
     Indication: Pain management
     Dosage: 300 MG, Q12H
     Dates: start: 201711
  28. OMEPRAZOLE [Concomitant]
     Active Substance: OMEPRAZOLE
     Indication: Product used for unknown indication
     Dosage: 20 MG/24 H
  29. OMEPRAZOLE [Concomitant]
     Active Substance: OMEPRAZOLE
     Dosage: 20 MG/24 H
     Dates: start: 201711
  30. METAMIZOLE SODIUM [Concomitant]
     Active Substance: METAMIZOLE SODIUM
     Indication: Product used for unknown indication
     Dosage: 1.15 G, Q8H
     Dates: end: 201711
  31. BROMAZEPAM [Concomitant]
     Active Substance: BROMAZEPAM
     Indication: Product used for unknown indication
     Dosage: 1.5 MG/24 H
     Dates: start: 201711
  32. GRANISETRON [Concomitant]
     Active Substance: GRANISETRON
     Indication: Product used for unknown indication
     Dosage: 1 MG, Q12H
     Dates: start: 201711
  33. MAGNESIUM HYDROXIDE [Concomitant]
     Active Substance: MAGNESIUM HYDROXIDE
     Indication: Product used for unknown indication
     Dosage: BETWEEN 1 AND 3 SACHETS PER DAY
     Dates: start: 201711
  34. OLANZAPINE [Concomitant]
     Active Substance: OLANZAPINE
     Indication: Pruritus
     Dosage: UNKNOWN
     Route: 065
  35. OLANZAPINE [Concomitant]
     Active Substance: OLANZAPINE
     Dosage: UNKNOWN
  36. OLANZAPINE [Concomitant]
     Active Substance: OLANZAPINE
     Dosage: UNKNOWN
     Dates: start: 2017

REACTIONS (10)
  - Skin plaque [Unknown]
  - Pneumonitis [Unknown]
  - Cognitive disorder [Unknown]
  - Anxiety [Unknown]
  - Oedema [Unknown]
  - Drug dose titration not performed [Unknown]
  - Constipation [Unknown]
  - Dry mouth [Unknown]
  - Insomnia [Unknown]
  - Nausea [Unknown]

NARRATIVE: CASE EVENT DATE: 20170101
